FAERS Safety Report 21557430 (Version 3)
Quarter: 2025Q1

REPORT INFORMATION
  Report Type: Spontaneous
  Country: US (occurrence: US)
  Receive Date: 20221105
  Receipt Date: 20250227
  Transmission Date: 20250409
  Serious: Yes (Life-Threatening, Hospitalization, Other)
  Sender: AUROBINDO
  Company Number: US-AUROBINDO-AUR-APL-2022-046206

PATIENT
  Age: 32 Year
  Sex: Male

DRUGS (1)
  1. CLOZAPINE [Suspect]
     Active Substance: CLOZAPINE
     Indication: Product used for unknown indication
     Route: 065

REACTIONS (8)
  - Cardiac arrest [Unknown]
  - Chest pain [Unknown]
  - Neutropenia [Unknown]
  - Ear pain [Unknown]
  - Blood glucose increased [Unknown]
  - Hypotension [Unknown]
  - General physical health deterioration [Unknown]
  - Emergency care [Unknown]

NARRATIVE: CASE EVENT DATE: 20221021
